FAERS Safety Report 6899294-2 (Version None)
Quarter: 2010Q3

REPORT INFORMATION
  Report Type: 
  Country: None (occurrence: None)
  Receive Date: 20100802
  Receipt Date: 20080408
  Transmission Date: 20110219
  Serious: No
  Sender: FDA-Public Use
  Company Number: US-PFIZER INC-2006068015

PATIENT
  Sex: Male
  Weight: 70.31 kg

DRUGS (3)
  1. LYRICA [Suspect]
     Indication: PAIN
     Dates: start: 20060101
  2. WARFARIN SODIUM [Concomitant]
     Route: 065
  3. CRESTOR [Concomitant]
     Route: 065

REACTIONS (5)
  - ASTHENIA [None]
  - DRUG INEFFECTIVE [None]
  - SOMNOLENCE [None]
  - TREMOR [None]
  - VISION BLURRED [None]
